FAERS Safety Report 25048539 (Version 2)
Quarter: 2025Q4

REPORT INFORMATION
  Report Type: Spontaneous
  Country: US (occurrence: US)
  Receive Date: 20250307
  Receipt Date: 20251027
  Transmission Date: 20260118
  Serious: No
  Sender: ELI LILLY AND COMPANY
  Company Number: US-ELI_LILLY_AND_COMPANY-US202503004365

PATIENT
  Age: 35 Year
  Sex: Female
  Weight: 56.1 kg

DRUGS (1)
  1. EBGLYSS [Suspect]
     Active Substance: LEBRIKIZUMAB-LBKZ
     Indication: Dermatitis atopic
     Dosage: 250 MG, EVERY TWO WEEKS
     Route: 058
     Dates: start: 20250110, end: 20250228

REACTIONS (2)
  - Herpes simplex [Recovered/Resolved]
  - Hordeolum [Recovered/Resolved]
